FAERS Safety Report 7935948-4 (Version None)
Quarter: 2011Q4

REPORT INFORMATION
  Report Type: 
  Country: None (occurrence: None)
  Receive Date: 20111123
  Receipt Date: 20111114
  Transmission Date: 20120403
  Serious: Yes (Other)
  Sender: FDA-Public Use
  Company Number: US-NOVOPROD-339425

PATIENT

DRUGS (2)
  1. VICTOZA [Suspect]
     Indication: TYPE 2 DIABETES MELLITUS
     Dosage: 0.6 MG, QD
     Route: 058
     Dates: start: 20110501, end: 20111001
  2. VICTOZA [Suspect]
     Indication: WEIGHT DECREASED

REACTIONS (1)
  - RETINAL VEIN OCCLUSION [None]
